FAERS Safety Report 23590476 (Version 1)
Quarter: 2024Q1

REPORT INFORMATION
  Report Type: Spontaneous
  Country: ES (occurrence: ES)
  Receive Date: 20240304
  Receipt Date: 20240304
  Transmission Date: 20240410
  Serious: Yes (Other)
  Sender: FDA-Public Use
  Company Number: ES-OTSUKA-2023_029572

PATIENT
  Age: 16 Year
  Sex: Female

DRUGS (6)
  1. ARIPIPRAZOLE [Suspect]
     Active Substance: ARIPIPRAZOLE
     Indication: Schizophrenia
     Dosage: 10 MILLIGRAM (ADJUVANT TREATMENT)
     Route: 048
  2. ARIPIPRAZOLE [Suspect]
     Active Substance: ARIPIPRAZOLE
     Dosage: 30 MILLIGRAM
     Route: 048
  3. RISPERIDONE [Suspect]
     Active Substance: RISPERIDONE
     Indication: Schizophrenia
     Dosage: 3 MILLIGRAM
     Route: 065
  4. ABILIFY MAINTENA [Suspect]
     Active Substance: ARIPIPRAZOLE
     Indication: Schizophrenia
     Dosage: UNK
     Route: 065
  5. RISPERDAL [Suspect]
     Active Substance: RISPERIDONE
     Indication: Schizophrenia
     Dosage: 3 MILLIGRAM
     Route: 065
  6. RISPERDAL [Suspect]
     Active Substance: RISPERIDONE
     Dosage: 6 MILLIGRAM, ONCE A DAY (PROGRESSIVE INCREASE IN THE DOSE UP TO A TOTAL OF 6 MG DAILY)
     Route: 048

REACTIONS (8)
  - Hyperprolactinaemia [Recovered/Resolved]
  - Oculogyric crisis [Recovered/Resolved]
  - Increased appetite [Recovered/Resolved]
  - Psychiatric decompensation [Unknown]
  - Therapy interrupted [Unknown]
  - Treatment noncompliance [Unknown]
  - Product use issue [Unknown]
  - Weight increased [Recovering/Resolving]
